FAERS Safety Report 24588937 (Version 3)
Quarter: 2025Q1

REPORT INFORMATION
  Report Type: Spontaneous
  Country: US (occurrence: US)
  Receive Date: 20241107
  Receipt Date: 20250109
  Transmission Date: 20250408
  Serious: No
  Sender: PFIZER
  Company Number: US-PFIZER INC-202400291074

PATIENT
  Age: 16 Year
  Sex: Male

DRUGS (1)
  1. GENOTROPIN [Suspect]
     Active Substance: SOMATROPIN
     Indication: Growth disorder
     Dosage: 2.8 MG, 1X/DAY NIGHTLY
     Route: 058

REACTIONS (3)
  - Device issue [Unknown]
  - Device mechanical issue [Unknown]
  - Device occlusion [Unknown]
